FAERS Safety Report 18846399 (Version 1)
Quarter: 2021Q1

REPORT INFORMATION
  Report Type: Spontaneous
  Country: US (occurrence: US)
  Receive Date: 20210203
  Receipt Date: 20210203
  Transmission Date: 20210419
  Serious: Yes (Hospitalization)
  Sender: FDA-Public Use
  Company Number: None

PATIENT
  Age: 72 Year
  Sex: Male
  Weight: 127.91 kg

DRUGS (1)
  1. CARVEDILOL (CARVEDILOL 6.25 MG TAB) [Suspect]
     Active Substance: CARVEDILOL
     Indication: ATRIAL FIBRILLATION
     Route: 048
     Dates: start: 20181226, end: 20201026

REACTIONS (1)
  - Bradycardia [None]

NARRATIVE: CASE EVENT DATE: 20201025
